FAERS Safety Report 5040699-2 (Version None)
Quarter: 2006Q2

REPORT INFORMATION
  Report Type: 
  Country: None (occurrence: None)
  Receive Date: 20060630
  Receipt Date: 20060630
  Transmission Date: 20061013
  Serious: Yes (Other)
  Sender: FDA-Public Use
  Company Number: None

PATIENT
  Sex: Female
  Weight: 97.1 kg

DRUGS (1)
  1. LEVOFLOXACIN [Suspect]
     Indication: INFECTION
     Dosage: 500MG  Q24H  IV
     Route: 042
     Dates: start: 20060626, end: 20060627

REACTIONS (4)
  - EYELID OEDEMA [None]
  - HALLUCINATION, VISUAL [None]
  - NERVOUSNESS [None]
  - SWELLING FACE [None]
